FAERS Safety Report 7620819-3 (Version None)
Quarter: 2011Q3

REPORT INFORMATION
  Report Type: 
  Country: None (occurrence: None)
  Receive Date: 20110719
  Receipt Date: 20110714
  Transmission Date: 20111222
  Serious: No
  Sender: FDA-Public Use
  Company Number: US-PFIZER INC-2011106973

PATIENT
  Sex: Male
  Weight: 147 kg

DRUGS (6)
  1. TERAZOSIN [Concomitant]
     Indication: PROSTATOMEGALY
     Dosage: UNK
  2. AVODART [Concomitant]
     Indication: PROSTATOMEGALY
     Dosage: UNK
  3. METFORMIN [Concomitant]
     Indication: DIABETES MELLITUS
     Dosage: UNK
  4. LISINOPRIL [Concomitant]
     Dosage: UNK
  5. SOMAVERT [Suspect]
     Indication: ACROMEGALY
     Dosage: 20 MG, 1X/DAY
     Dates: start: 20110430
  6. CRESTOR [Concomitant]
     Indication: BLOOD CHOLESTEROL INCREASED
     Dosage: UNK

REACTIONS (1)
  - BLOOD GROWTH HORMONE INCREASED [None]
